FAERS Safety Report 6569316-7 (Version None)
Quarter: 2010Q1

REPORT INFORMATION
  Report Type: 
  Country: None (occurrence: None)
  Receive Date: 20100129
  Receipt Date: 20100111
  Transmission Date: 20100710
  Serious: Yes (Death)
  Sender: FDA-Public Use
  Company Number: 005416

PATIENT
  Sex: Female

DRUGS (7)
  1. ALPRAZOLAM [Suspect]
  2. ACETAMINOPHEN- PROPOXYPHENE HCL TAB [Suspect]
  3. QUETIAPINE [Suspect]
  4. TRAZODONE [Suspect]
  5. CLONAZEPAM [Suspect]
  6. BENZODIAZEPINE DERIVATIVES [Suspect]
  7. ACETMINOPHEN W/HYDRODCONE [Suspect]

REACTIONS (1)
  - COMPLETED SUICIDE [None]
